FAERS Safety Report 16278123 (Version 1)
Quarter: 2019Q2

REPORT INFORMATION
  Report Type: Spontaneous
  Country: DK (occurrence: DK)
  Receive Date: 20190506
  Receipt Date: 20190506
  Transmission Date: 20190711
  Serious: Yes (Other)
  Sender: FDA-Public Use
  Company Number: DK-EX USA HOLDINGS-EXHL20192240

PATIENT
  Age: 24 Year
  Sex: Female

DRUGS (4)
  1. LEVONORGESTREL AND ETHINYL ESTRADIOL [Suspect]
     Active Substance: ETHINYL ESTRADIOL\LEVONORGESTREL
     Dosage: 150 MCG / 30 MCG
     Route: 048
     Dates: start: 20170925, end: 201711
  2. LEVONORGESTREL AND ETHINYL ESTRADIOL [Suspect]
     Active Substance: ETHINYL ESTRADIOL\LEVONORGESTREL
     Dosage: 150 MCG / 30 MCG
     Route: 048
     Dates: start: 20171208, end: 201712
  3. LEVONORGESTREL AND ETHINYL ESTRADIOL [Suspect]
     Active Substance: ETHINYL ESTRADIOL\LEVONORGESTREL
     Indication: ENDOMETRIOSIS
     Dosage: 150 MCG / 30 MCG
     Route: 048
     Dates: start: 201504, end: 201709
  4. LEVONORGESTREL AND ETHINYL ESTRADIOL [Suspect]
     Active Substance: ETHINYL ESTRADIOL\LEVONORGESTREL
     Dosage: 150 MCG / 30 MCG
     Route: 048
     Dates: start: 201711, end: 20171204

REACTIONS (6)
  - Fatigue [Unknown]
  - Drug-induced liver injury [Recovered/Resolved]
  - Product use in unapproved indication [None]
  - Hepatotoxicity [Recovered/Resolved]
  - Inappropriate schedule of product administration [None]
  - Alanine aminotransferase increased [Unknown]

NARRATIVE: CASE EVENT DATE: 201504
